FAERS Safety Report 22383246 (Version 2)
Quarter: 2023Q2

REPORT INFORMATION
  Report Type: Spontaneous
  Country: CA (occurrence: CA)
  Receive Date: 20230530
  Receipt Date: 20230613
  Transmission Date: 20230721
  Serious: Yes (Life-Threatening, Hospitalization, Other)
  Sender: FDA-Public Use
  Company Number: CA-002147023-NVSC2023CA122316

PATIENT
  Age: 77 Year
  Sex: Female

DRUGS (27)
  1. DIAZEPAM [Interacting]
     Active Substance: DIAZEPAM
     Indication: Coronary artery disease
     Dosage: 75 MG, QD
     Route: 065
  2. DIAZEPAM [Interacting]
     Active Substance: DIAZEPAM
     Indication: Hypertension
  3. DIAZEPAM [Interacting]
     Active Substance: DIAZEPAM
     Indication: Angina pectoris
  4. DIAZEPAM [Interacting]
     Active Substance: DIAZEPAM
     Indication: Insomnia
  5. PHENYLEPHRINE HYDROCHLORIDE [Interacting]
     Active Substance: PHENYLEPHRINE HYDROCHLORIDE
     Indication: Cerebrovascular accident
     Dosage: UNK
     Route: 065
  6. PHENOLPHTHALEIN [Interacting]
     Active Substance: PHENOLPHTHALEIN
     Indication: Pain
     Dosage: UNK
     Route: 065
  7. QUININE [Interacting]
     Active Substance: QUININE
     Indication: Pain
     Dosage: UNK
     Route: 065
  8. SPIRIVA [Interacting]
     Active Substance: TIOTROPIUM BROMIDE MONOHYDRATE
     Indication: Chronic obstructive pulmonary disease
     Dosage: UNK
     Route: 065
  9. SPIRIVA [Interacting]
     Active Substance: TIOTROPIUM BROMIDE MONOHYDRATE
     Indication: Asthma
     Dosage: 18 UG, Q12H
     Route: 065
  10. SPIRIVA [Interacting]
     Active Substance: TIOTROPIUM BROMIDE MONOHYDRATE
     Dosage: UNK
     Route: 065
  11. SPIRIVA [Interacting]
     Active Substance: TIOTROPIUM BROMIDE MONOHYDRATE
     Dosage: 18 UG, QD
     Route: 065
  12. SALICYLAMIDE [Interacting]
     Active Substance: SALICYLAMIDE
     Indication: Pain
     Dosage: UNK
     Route: 065
  13. CYCLOBENZAPRINE HYDROCHLORIDE [Interacting]
     Active Substance: CYCLOBENZAPRINE HYDROCHLORIDE
     Indication: Pain
     Dosage: 5 MG, Q8H
     Route: 065
  14. CYCLOBENZAPRINE HYDROCHLORIDE [Interacting]
     Active Substance: CYCLOBENZAPRINE HYDROCHLORIDE
     Indication: Fibromyalgia
     Dosage: 1.87 MG, QD
     Route: 065
  15. CYCLOBENZAPRINE HYDROCHLORIDE [Interacting]
     Active Substance: CYCLOBENZAPRINE HYDROCHLORIDE
     Dosage: 5 MG, Q8H
     Route: 065
  16. CYCLOBENZAPRINE HYDROCHLORIDE [Interacting]
     Active Substance: CYCLOBENZAPRINE HYDROCHLORIDE
     Dosage: 1.87 MG, QD
     Route: 065
  17. CYCLOBENZAPRINE HYDROCHLORIDE [Interacting]
     Active Substance: CYCLOBENZAPRINE HYDROCHLORIDE
     Dosage: 5 MG, Q12H
     Route: 065
  18. CYCLOBENZAPRINE HYDROCHLORIDE [Interacting]
     Active Substance: CYCLOBENZAPRINE HYDROCHLORIDE
     Dosage: 5 MG, Q12H
     Route: 065
  19. CYCLOBENZAPRINE HYDROCHLORIDE [Interacting]
     Active Substance: CYCLOBENZAPRINE HYDROCHLORIDE
     Indication: Pain
     Dosage: 5 MG, QD
     Route: 065
  20. CYCLOBENZAPRINE HYDROCHLORIDE [Interacting]
     Active Substance: CYCLOBENZAPRINE HYDROCHLORIDE
     Indication: Fibromyalgia
     Dosage: 5 MG, QD
     Route: 065
  21. LEVALBUTEROL [Interacting]
     Active Substance: LEVALBUTEROL
     Indication: Product used for unknown indication
     Dosage: UNK
     Route: 065
  22. ACETAMINOPHEN [Interacting]
     Active Substance: ACETAMINOPHEN
     Indication: Product used for unknown indication
     Dosage: UNK
     Route: 065
  23. OMEPRAZOLE MAGNESIUM [Interacting]
     Active Substance: OMEPRAZOLE MAGNESIUM
     Indication: Hypertension
     Dosage: 20 MG, QD
     Route: 048
  24. OMEPRAZOLE MAGNESIUM [Interacting]
     Active Substance: OMEPRAZOLE MAGNESIUM
     Indication: Duodenal ulcer
     Dosage: 20 MG, QD
     Route: 048
  25. OMEPRAZOLE MAGNESIUM [Interacting]
     Active Substance: OMEPRAZOLE MAGNESIUM
     Indication: Coronary artery disease
     Dosage: 20 MG, QD
     Route: 048
  26. OMEPRAZOLE MAGNESIUM [Interacting]
     Active Substance: OMEPRAZOLE MAGNESIUM
     Indication: Chest pain
     Dosage: 20 MG, QD
     Route: 048
  27. OMEPRAZOLE MAGNESIUM [Interacting]
     Active Substance: OMEPRAZOLE MAGNESIUM
     Indication: Angina pectoris
     Dosage: 20 MG, QD
     Route: 048

REACTIONS (3)
  - Renal function test abnormal [Recovered/Resolved]
  - Dyspnoea [Recovered/Resolved]
  - Drug interaction [Recovered/Resolved]
